FAERS Safety Report 7274855-X (Version None)
Quarter: 2011Q1

REPORT INFORMATION
  Report Type: 
  Country: None (occurrence: None)
  Receive Date: 20110202
  Receipt Date: 20110202
  Transmission Date: 20110831
  Serious: Yes (Other)
  Sender: FDA-Public Use
  Company Number: None

PATIENT
  Sex: Female
  Weight: 100 kg

DRUGS (3)
  1. ATRACURIUM BESYLATE [Suspect]
  2. PANCURONIUM BROMIDE [Suspect]
  3. ROCURONIUM BROMIDE [Suspect]
     Indication: ANAESTHESIA
     Dosage: 200 MG MULTIPLE DOSES IV BOLUS
     Route: 040
     Dates: start: 20110112, end: 20110112

REACTIONS (1)
  - DRUG EFFECT DECREASED [None]
